FAERS Safety Report 4530717-X (Version None)
Quarter: 2004Q4

REPORT INFORMATION
  Report Type: 
  Country: None (occurrence: None)
  Receive Date: 20041217
  Receipt Date: 20041125
  Transmission Date: 20050328
  Serious: Yes (Hospitalization)
  Sender: FDA-Public Use
  Company Number: JP-GLAXOSMITHKLINE-B0358225A

PATIENT
  Age: 77 Year
  Sex: Male
  Weight: 55 kg

DRUGS (4)
  1. VALTREX [Suspect]
     Indication: HERPES ZOSTER
     Dosage: 500MG THREE TIMES PER DAY
     Route: 048
     Dates: start: 20041117, end: 20041124
  2. ESIDRI [Concomitant]
     Dosage: 1U PER DAY
     Route: 048
  3. NATRIX [Concomitant]
     Dosage: 2MG PER DAY
     Route: 048
  4. MEVALOTIN [Concomitant]
     Route: 048

REACTIONS (4)
  - CONFUSIONAL STATE [None]
  - DELIRIUM [None]
  - DYSGRAPHIA [None]
  - SPEECH DISORDER [None]
